FAERS Safety Report 20987021 (Version 3)
Quarter: 2022Q3

REPORT INFORMATION
  Report Type: Spontaneous
  Country: US (occurrence: US)
  Receive Date: 20220621
  Receipt Date: 20220901
  Transmission Date: 20221026
  Serious: Yes (Other)
  Sender: FDA-Public Use
  Company Number: US-Hikma Pharmaceuticals USA Inc.-US-H14001-22-01502

PATIENT
  Sex: Female

DRUGS (1)
  1. EXEMESTANE [Suspect]
     Active Substance: EXEMESTANE
     Indication: Neoplasm malignant
     Route: 048

REACTIONS (15)
  - Feeling abnormal [Unknown]
  - Heart rate increased [Unknown]
  - Fear [Unknown]
  - Nervousness [Unknown]
  - Muscle fatigue [Unknown]
  - Anxiety [Unknown]
  - Drug hypersensitivity [Unknown]
  - Dizziness [Unknown]
  - Paraesthesia [Unknown]
  - Hyperhidrosis [Unknown]
  - Hot flush [Unknown]
  - Adverse event [Unknown]
  - Illness [Unknown]
  - Product dose omission issue [Unknown]
  - Product use issue [Unknown]
